FAERS Safety Report 7497860-7 (Version None)
Quarter: 2011Q2

REPORT INFORMATION
  Report Type: 
  Country: None (occurrence: None)
  Receive Date: 20110524
  Receipt Date: 20100319
  Transmission Date: 20111010
  Serious: Yes (Other)
  Sender: FDA-Public Use
  Company Number: US-BAYER-201016723NA

PATIENT
  Age: 51 Year
  Sex: Female
  Weight: 107.9 kg

DRUGS (46)
  1. VERSED [Concomitant]
     Dosage: 1 MG, UNK
     Route: 042
     Dates: start: 20040327
  2. VERSED [Concomitant]
     Dosage: 5 MG, UNK
     Route: 042
     Dates: start: 20040328
  3. FENTANYL [Concomitant]
     Dosage: 8 MG, UNK
     Route: 042
     Dates: start: 20040328
  4. HEPARIN [Concomitant]
     Dosage: 60000 U, UNK
     Route: 042
     Dates: start: 20040328
  5. PROPOFOL [Concomitant]
     Dosage: 30 MCG/KG/HR
     Route: 042
     Dates: start: 20040328
  6. DOBUTAMINE HYDROCHLORIDE [Concomitant]
     Dosage: 2.5 MCG/KG/MIN
     Route: 042
     Dates: start: 20040328
  7. HUMULIN N [Concomitant]
     Dosage: 35 U, HS
     Route: 058
     Dates: start: 20000101
  8. PLAVIX [Concomitant]
     Dosage: 75 MG, QD
     Route: 048
     Dates: start: 20040101
  9. LOPRESSOR [Concomitant]
     Dosage: 5 MG , 5 MG, 5 MG
     Route: 042
     Dates: start: 20040327, end: 20040327
  10. HYDROCHLOROTHIAZIDE [Concomitant]
  11. INSULIN [Concomitant]
     Dosage: 0.2 UNITS/HR (INITIAL)
     Route: 042
     Dates: start: 20040328
  12. PROPOFOL [Concomitant]
     Dosage: 25 MCG/KG/HR
     Route: 042
     Dates: start: 20040328
  13. PROTAMINE SULFATE [Concomitant]
     Dosage: 400 MG, UNK
     Route: 042
     Dates: start: 20040328, end: 20040328
  14. TRASYLOL [Suspect]
     Dosage: 50 ML/HR (INFUSION)
     Route: 042
     Dates: start: 20040328, end: 20040328
  15. LASIX [Concomitant]
     Dosage: UNK
     Dates: start: 20040101
  16. NITROGLYCERIN [Concomitant]
     Dosage: 100 MCG
     Route: 042
     Dates: start: 20040328
  17. ZYRTEC [Concomitant]
     Dosage: 10 MG, QD
     Route: 048
  18. INSULIN [Concomitant]
     Dosage: 1.0 UNIT/HR
     Route: 042
     Dates: start: 20040328
  19. INSULIN [Concomitant]
     Dosage: 2 UNITS/HR
     Route: 042
     Dates: start: 20040328
  20. ACTOS [Concomitant]
     Dosage: 45 MG, QD
     Route: 048
     Dates: start: 19940101, end: 20040101
  21. DILTIA XT [Concomitant]
     Dosage: 240 MG, QD
     Route: 048
  22. DILTIAZEM [Concomitant]
  23. FENTANYL [Concomitant]
     Dosage: 7 MG, UNK
     Route: 042
     Dates: start: 20040328
  24. TRASYLOL [Suspect]
     Dosage: 200 ML (LOADING DOSE)
     Route: 042
     Dates: start: 20040328, end: 20040328
  25. SYNTHROID [Concomitant]
     Dosage: 75 MCG DAILY
     Route: 048
  26. LASIX [Concomitant]
     Dosage: 20 MG, UNK
     Route: 042
     Dates: start: 20040328, end: 20040328
  27. NITROGLYCERIN [Concomitant]
     Dosage: 30 MCG/MIN
     Route: 042
     Dates: start: 20040327, end: 20040327
  28. COREG [Concomitant]
     Dosage: UNK
     Dates: start: 20040101
  29. ENALAPRIL MALEATE [Concomitant]
     Dosage: 20 MG, BID
     Route: 048
  30. PAPAVERINE [Concomitant]
     Dosage: 30 MG, UNK
     Dates: start: 20040328
  31. PRECEDEX [Concomitant]
     Dosage: 25 MG/KG/HR
     Route: 042
     Dates: start: 20040328, end: 20040328
  32. ETOMIDATE [Concomitant]
     Dosage: 16 MG, UNK
     Route: 042
     Dates: start: 20040328, end: 20040328
  33. MANNITOL [Concomitant]
     Dosage: 12.5 G, UNK
     Route: 042
     Dates: start: 20040328, end: 20040328
  34. FENTANYL [Concomitant]
     Dosage: 2 MG, UNK
     Route: 042
     Dates: start: 20040328
  35. PRECEDEX [Concomitant]
     Dosage: 30 MG/KG/HR
     Route: 042
     Dates: start: 20040328, end: 20040328
  36. HUMALOG [Concomitant]
     Dosage: 20 U, TID (BEFORE MEALS)
     Route: 058
  37. HUMULIN N [Concomitant]
     Dosage: 50 U, QD
     Route: 058
     Dates: start: 20000101
  38. FENTANYL [Concomitant]
     Dosage: 25 MCG
     Route: 042
     Dates: start: 20040327, end: 20040327
  39. NITROGLYCERIN [Concomitant]
     Dosage: 200 MCG
     Route: 042
     Dates: start: 20040328
  40. CEFAZOLIN [Concomitant]
     Dosage: 2 G, UNK
     Route: 042
     Dates: start: 20040328, end: 20040328
  41. FAMOTIDINE [Concomitant]
     Dosage: 20 MG, UNK
     Route: 042
     Dates: start: 20040328, end: 20040328
  42. TRASYLOL [Suspect]
     Indication: CORONARY ARTERY BYPASS
     Dosage: 200 ML, ONCE (PUMP PRIME DOSE)
     Route: 042
     Dates: start: 20040328, end: 20040328
  43. FENTANYL [Concomitant]
     Dosage: 5 MG, UNK
     Route: 042
     Dates: start: 20040328
  44. INSULIN [Concomitant]
     Dosage: 2.5 UNITS/HR
     Route: 042
     Dates: start: 20040328
  45. DOBUTAMINE HYDROCHLORIDE [Concomitant]
     Dosage: 7.5 MCG/KG/MIN
     Route: 042
     Dates: start: 20040328
  46. MAGNESIUM SULFATE [Concomitant]
     Dosage: 2 G, UNK
     Route: 042
     Dates: start: 20040328, end: 20040328

REACTIONS (4)
  - RENAL FAILURE [None]
  - PAIN [None]
  - DEPRESSION [None]
  - INJURY [None]
